FAERS Safety Report 6554447-8 (Version None)
Quarter: 2010Q1

REPORT INFORMATION
  Report Type: 
  Country: None (occurrence: None)
  Receive Date: 20100125
  Receipt Date: 20100125
  Transmission Date: 20100710
  Serious: No
  Sender: FDA-Public Use
  Company Number: None

PATIENT
  Age: 13 Year
  Sex: Female
  Weight: 41.7309 kg

DRUGS (2)
  1. SINGULAIR [Suspect]
     Indication: ASTHMA
     Dosage: 5MG 1 TIMES A DAY AY B UNK
     Dates: start: 20091228, end: 20100123
  2. SINGULAIR [Concomitant]

REACTIONS (6)
  - ASTHMA [None]
  - CONDITION AGGRAVATED [None]
  - COUGH [None]
  - DYSPNOEA [None]
  - TREMOR [None]
  - URTICARIA [None]
